FAERS Safety Report 7522557-4 (Version None)
Quarter: 2011Q2

REPORT INFORMATION
  Report Type: 
  Country: None (occurrence: None)
  Receive Date: 20110603
  Receipt Date: 20110502
  Transmission Date: 20111010
  Serious: No
  Sender: FDA-Public Use
  Company Number: US-BAYER-2011-039665

PATIENT
  Age: 76 Year
  Sex: Female
  Weight: 50 kg

DRUGS (10)
  1. ASCORBIC ACID [Concomitant]
  2. MIRAPEX [Concomitant]
  3. NORTRIPTYLINE HCL [Concomitant]
  4. CALCIUM CARBONATE [Concomitant]
  5. MULTI-VITAMIN [Concomitant]
  6. ALEVE (CAPLET) [Suspect]
     Indication: ARTHRITIS
     Dosage: BOTTLE COUNT 200S
     Route: 048
     Dates: start: 20010101
  7. VITAMIN D [Concomitant]
  8. TEMAZEPAM [Concomitant]
  9. GABAPENTIN [Concomitant]
  10. VITAMIN E [Concomitant]

REACTIONS (1)
  - NO ADVERSE EVENT [None]
